FAERS Safety Report 9512189 (Version 2)
Quarter: 2013Q4

REPORT INFORMATION
  Report Type: Spontaneous
  Country: US (occurrence: US)
  Receive Date: 20130910
  Receipt Date: 20131108
  Transmission Date: 20140711
  Serious: Yes (Hospitalization, Other)
  Sender: FDA-Public Use
  Company Number: US-ELI_LILLY_AND_COMPANY-US201309001103

PATIENT
  Age: 60 Year
  Sex: Female

DRUGS (14)
  1. HUMALOG 25% LISPRO, 75% NPL [Suspect]
     Indication: TYPE 2 DIABETES MELLITUS
     Dosage: 40 U, EACH MORNING
     Route: 058
     Dates: start: 20130802
  2. HUMALOG 25% LISPRO, 75% NPL [Suspect]
     Dosage: 30 U, EACH EVENING
     Route: 058
     Dates: start: 20130802
  3. METFORMIN [Concomitant]
     Dosage: 1 G, BID
  4. GLYBURIDE [Concomitant]
     Dosage: 10 MG, BID
  5. SOMA [Concomitant]
     Dosage: 350 MG, BID
  6. RANITIDINE [Concomitant]
     Dosage: 150 MG, BID
  7. FLAXSEED OIL [Concomitant]
     Dosage: 1000 MG, BID
  8. CYMBALTA [Concomitant]
     Dosage: 60 MG, QD
  9. PRAVASTATIN [Concomitant]
     Dosage: 40 MG, QD
  10. FISH OIL [Concomitant]
     Dosage: 2000 MG, QD
  11. AMBIEN [Concomitant]
     Dosage: 10 MG, QD
  12. NEURONTIN [Concomitant]
     Dosage: 1200 MG, BID
  13. LISINOPRIL [Concomitant]
     Dosage: 20 MG, QD
  14. PERCOCET [Concomitant]
     Dosage: UNK, QD

REACTIONS (7)
  - Hypoglycaemic unconsciousness [Recovered/Resolved]
  - Dehydration [Recovered/Resolved]
  - Fatigue [Recovered/Resolved]
  - Blood glucose increased [Unknown]
  - Glycosylated haemoglobin increased [Unknown]
  - Blood glucose increased [Recovered/Resolved]
  - Drug ineffective [Recovered/Resolved]
